FAERS Safety Report 25716492 (Version 1)
Quarter: 2025Q3

REPORT INFORMATION
  Report Type: Spontaneous
  Country: US (occurrence: None)
  Receive Date: 20250822
  Receipt Date: 20250822
  Transmission Date: 20251021
  Serious: Yes (Other)
  Sender: FDA-CTU
  Company Number: None

PATIENT
  Age: 49 Year
  Sex: Female
  Weight: 63.9 kg

DRUGS (6)
  1. MINOXIDIL [Suspect]
     Active Substance: MINOXIDIL
     Indication: Alopecia
     Dosage: 1 TBLET DAILY ORAL
     Route: 048
     Dates: start: 20250809, end: 20250822
  2. .27ml Testosterone cypionate 200mg/ml injected once a week 1mg [Concomitant]
  3. finasteride 1 tab taken daily 200/300mg [Concomitant]
  4. emtricitabine/ tenofovir df (sub for truvada) 1 tab taken daily [Concomitant]
  5. 50 mcg (2000 IU) vitamin d3 Nature Made gummies daily [Concomitant]
  6. Nature Made Multi for Him gummies daily Advil [Concomitant]

REACTIONS (1)
  - Syncope [None]

NARRATIVE: CASE EVENT DATE: 20250821
